FAERS Safety Report 20738361 (Version 1)
Quarter: 2022Q2

REPORT INFORMATION
  Report Type: Spontaneous
  Country: TR (occurrence: None)
  Receive Date: 20220422
  Receipt Date: 20220422
  Transmission Date: 20220721
  Serious: Yes (Death, Other)
  Sender: FDA-Public Use
  Company Number: TR-ADIENNEP-2022AD000336

PATIENT
  Age: 64 Year
  Sex: Female

DRUGS (4)
  1. THIOTEPA [Suspect]
     Active Substance: THIOTEPA
     Indication: Chemotherapy
     Dosage: 30 MG/M2 ON DAY 4
  2. METHOTREXATE [Suspect]
     Active Substance: METHOTREXATE
     Indication: Chemotherapy
     Dosage: 3.5 G/M2 ON DAY 1 (3.5G/M2)
  3. CYTARABINE [Suspect]
     Active Substance: CYTARABINE
     Indication: Chemotherapy
     Dosage: 2 G/M2 TWICE DAILY ON DAYS 2 AND 3 (2G/M2)
  4. RITUXIMAB [Suspect]
     Active Substance: RITUXIMAB
     Indication: Chemotherapy
     Dosage: 375 MG/M2 ON DAYS 5 AND 0

REACTIONS (2)
  - Neutropenia [Unknown]
  - Pulmonary sepsis [Fatal]
